FAERS Safety Report 4538403-7 (Version None)
Quarter: 2004Q4

REPORT INFORMATION
  Report Type: 
  Country: None (occurrence: None)
  Receive Date: 20041223
  Receipt Date: 20041223
  Transmission Date: 20050328
  Serious: No
  Sender: FDA-Public Use
  Company Number: None

PATIENT
  Age: 64 Year
  Sex: Female
  Weight: 69.8539 kg

DRUGS (7)
  1. REMICADE [Suspect]
     Indication: RHEUMATOID ARTHRITIS
     Dosage: 210 MG IV
     Route: 042
     Dates: start: 20040325
  2. REMICADE [Suspect]
     Indication: RHEUMATOID ARTHRITIS
     Dosage: 210 MG IV
     Route: 042
     Dates: start: 20040521
  3. REMICADE [Suspect]
     Indication: RHEUMATOID ARTHRITIS
     Dosage: 210 MG IV
     Route: 042
     Dates: start: 20040716
  4. PREDNISONE [Concomitant]
  5. KLOR-CON [Concomitant]
  6. FUROSEMIDE [Concomitant]
  7. ACTONEL [Concomitant]

REACTIONS (2)
  - INFUSION RELATED REACTION [None]
  - URTICARIA [None]
